FAERS Safety Report 18133108 (Version 1)
Quarter: 2020Q3

REPORT INFORMATION
  Report Type: Spontaneous
  Country: MX (occurrence: MX)
  Receive Date: 20200811
  Receipt Date: 20200811
  Transmission Date: 20201103
  Serious: Yes (Other)
  Sender: FDA-Public Use
  Company Number: MX-ALEXION-A202011716

PATIENT
  Sex: Female

DRUGS (1)
  1. SOLIRIS [Suspect]
     Active Substance: ECULIZUMAB
     Indication: PAROXYSMAL NOCTURNAL HAEMOGLOBINURIA
     Dosage: 900 MG/ML, UNK
     Route: 042
     Dates: start: 20200702

REACTIONS (3)
  - Haemolysis [Not Recovered/Not Resolved]
  - Product dose omission issue [Unknown]
  - Respiratory distress [Not Recovered/Not Resolved]

NARRATIVE: CASE EVENT DATE: 20200805
